FAERS Safety Report 9861625 (Version 2)
Quarter: 2014Q2

REPORT INFORMATION
  Report Type: Report from Study
  Country: KR (occurrence: KR)
  Receive Date: 20140203
  Receipt Date: 20140513
  Transmission Date: 20141212
  Serious: Yes (Hospitalization)
  Sender: FDA-Public Use
  Company Number: KR-ROCHE-1340841

PATIENT
  Age: 66 Year
  Sex: 0

DRUGS (1)
  1. METHOXY POLYETHYLENE GLYCOL-EPOETIN BETA [Suspect]
     Indication: NEPHROGENIC ANAEMIA
     Dosage: MOST RECENT DOSE PRIOR TO ADVESE EVENT 27/NOV/2013
     Route: 058
     Dates: start: 20131029

REACTIONS (1)
  - Peritonitis [Recovering/Resolving]
